FAERS Safety Report 11593081 (Version 1)
Quarter: 2015Q4

REPORT INFORMATION
  Report Type: Spontaneous
  Country: US (occurrence: None)
  Receive Date: 20151002
  Receipt Date: 20151002
  Transmission Date: 20160304
  Serious: Yes (Disabling)
  Sender: FDA-Public Use
  Company Number: None

PATIENT
  Age: 53 Year
  Sex: Female
  Weight: 62.14 kg

DRUGS (2)
  1. BOTOX [Suspect]
     Active Substance: ONABOTULINUMTOXINA
  2. DAILY VITAMIN [Concomitant]
     Active Substance: VITAMINS

REACTIONS (8)
  - Myalgia [None]
  - Balance disorder [None]
  - Arthralgia [None]
  - Dizziness [None]
  - Decreased appetite [None]
  - Influenza like illness [None]
  - Fatigue [None]
  - Impaired work ability [None]

NARRATIVE: CASE EVENT DATE: 20150821
